FAERS Safety Report 25606195 (Version 1)
Quarter: 2025Q3

REPORT INFORMATION
  Report Type: Spontaneous
  Country: US (occurrence: US)
  Receive Date: 20250725
  Receipt Date: 20250725
  Transmission Date: 20251020
  Serious: No
  Sender: PFIZER
  Company Number: US-PFIZER INC-202400329012

PATIENT
  Age: 47 Year
  Sex: Female

DRUGS (1)
  1. TUKYSA [Suspect]
     Active Substance: TUCATINIB
     Dosage: TWO 150MG TABLETS EVERY 12 HOURS

REACTIONS (2)
  - Hypersensitivity [Recovering/Resolving]
  - Off label use [Unknown]
